FAERS Safety Report 4566310-2 (Version None)
Quarter: 2005Q1

REPORT INFORMATION
  Report Type: 
  Country: None (occurrence: None)
  Receive Date: 20050126
  Receipt Date: 20050126
  Transmission Date: 20050727
  Serious: Yes (Hospitalization)
  Sender: FDA-Public Use
  Company Number: None

PATIENT
  Age: 41 Year
  Sex: Male

DRUGS (6)
  1. ZOSYN [Suspect]
     Indication: PYREXIA
     Dosage: 3.375 GM  Q6H  INTRAVENOU
     Route: 042
     Dates: start: 20050105, end: 20050112
  2. PANCREASE [Concomitant]
  3. SENNA [Concomitant]
  4. MORPHINE [Concomitant]
  5. DIPHENHYDRAMINE HCL [Concomitant]
  6. LACTULOSE [Concomitant]

REACTIONS (4)
  - HYPOVOLAEMIA [None]
  - NEPHRITIS ALLERGIC [None]
  - NEPHRITIS INTERSTITIAL [None]
  - RENAL FAILURE ACUTE [None]
